FAERS Safety Report 6084288-X (Version None)
Quarter: 2009Q1

REPORT INFORMATION
  Report Type: 
  Country: None (occurrence: None)
  Receive Date: 20090219
  Receipt Date: 20081223
  Transmission Date: 20090719
  Serious: Yes (Other)
  Sender: FDA-Public Use
  Company Number: US-PFIZER INC-2008160644

PATIENT
  Sex: Female
  Weight: 110 kg

DRUGS (9)
  1. CHANTIX [Suspect]
     Indication: SMOKING CESSATION THERAPY
     Dosage: UNK MG, UNK
     Dates: start: 20080901
  2. SEROQUEL [Concomitant]
     Dosage: 900 MG, 1X/DAY
     Dates: end: 20080930
  3. NEURONTIN [Concomitant]
     Dosage: 300MG AM / 1800MG PM
     Dates: end: 20080930
  4. OXYBUTYNIN [Concomitant]
     Indication: BLADDER DISORDER
     Dosage: UNK
     Dates: end: 20080930
  5. POTASSIUM [Concomitant]
     Dosage: UNK
     Dates: end: 20080930
  6. LEVOTHYROXINE [Concomitant]
     Indication: THYROID DISORDER
     Dosage: UNK
     Dates: end: 20080930
  7. FUROSEMIDE [Concomitant]
     Indication: OEDEMA PERIPHERAL
     Dosage: UNK
     Dates: end: 20080930
  8. DIAZEPAM [Concomitant]
     Dosage: 30 MG, 1X/DAY
     Dates: end: 20080930
  9. LAMICTAL [Concomitant]
     Indication: MOOD SWINGS
     Dosage: 160 MG, 1X/DAY
     Dates: end: 20080930

REACTIONS (9)
  - ANXIETY [None]
  - BIPOLAR DISORDER [None]
  - CONDITION AGGRAVATED [None]
  - DECREASED INTEREST [None]
  - DEPRESSION [None]
  - INCREASED APPETITE [None]
  - MALAISE [None]
  - PANIC ATTACK [None]
  - SUICIDAL IDEATION [None]
